FAERS Safety Report 18646425 (Version 2)
Quarter: 2021Q1

REPORT INFORMATION
  Report Type: Other
  Country: US (occurrence: US)
  Receive Date: 20201221
  Receipt Date: 20210320
  Transmission Date: 20210419
  Serious: No
  Sender: FDA-Public Use
  Company Number: US-ACORDA-ACO_166692_2020

PATIENT
  Sex: Male

DRUGS (2)
  1. INBRIJA [Suspect]
     Active Substance: LEVODOPA
     Indication: PARKINSON^S DISEASE
     Dosage: 84 MILLIGRAM, PRN (42 MG 2 CAPSULES AS NEEDED; NOT TO EXCEED 5 DOSES PER DAY)
  2. INBRIJA [Suspect]
     Active Substance: LEVODOPA
     Indication: ON AND OFF PHENOMENON
     Dosage: 2 DOSAGE FORM, PRN (NOT TO EXCEED 5 DOSES PER DAY)

REACTIONS (2)
  - Dry mouth [Unknown]
  - Cough [Unknown]
